FAERS Safety Report 4593627-8 (Version None)
Quarter: 2005Q1

REPORT INFORMATION
  Report Type: 
  Country: None (occurrence: None)
  Receive Date: 20050224
  Receipt Date: 20041011
  Transmission Date: 20050727
  Serious: No
  Sender: FDA-Public Use
  Company Number: US-BRISTOL-MYERS SQUIBB COMPANY-12730644

PATIENT
  Age: 64 Year
  Sex: Male
  Weight: 73 kg

DRUGS (4)
  1. EXCEDRIN (MIGRAINE) [Suspect]
     Indication: MIGRAINE
     Route: 048
  2. MULTI-VITAMINS [Concomitant]
  3. ASPIRIN [Concomitant]
  4. CHONDROITIN SULFATE + GLUCOSAMINE [Concomitant]

REACTIONS (3)
  - ERYTHEMA [None]
  - PRURITUS [None]
  - RASH [None]
